FAERS Safety Report 12250054 (Version 1)
Quarter: 2016Q2

REPORT INFORMATION
  Report Type: Spontaneous
  Country: US (occurrence: US)
  Receive Date: 20160408
  Receipt Date: 20160408
  Transmission Date: 20160815
  Serious: No
  Sender: FDA-Public Use
  Company Number: US-PFIZER INC-2016156565

PATIENT
  Age: 62 Year
  Sex: Male
  Weight: 70 kg

DRUGS (10)
  1. THEOPHYLLINE [Concomitant]
     Active Substance: THEOPHYLLINE ANHYDROUS
     Dosage: 300 MG, EVERY 12 HOURS
     Route: 048
  2. LYRICA [Suspect]
     Active Substance: PREGABALIN
     Indication: BACK PAIN
     Dosage: 75 MG, 2X/DAY
     Route: 048
     Dates: start: 20160216
  3. IPRATROPIUM/ALBUTEROL [Concomitant]
     Active Substance: ALBUTEROL\IPRATROPIUM
     Dosage: 3 ML, 4X/DAY (0.5MG-3 MG (2.5 MG BASE)/3 AT INHALE 3 MILLILITRE BY NEBULIZATION ROUTE 4 TIMES EVERY)
     Dates: start: 20151013
  4. SYMBICORT [Concomitant]
     Active Substance: BUDESONIDE\FORMOTEROL FUMARATE DIHYDRATE
     Dosage: 160 MCG-4.5 MCG: INHALE 2 PUFF 2 TIMES EVERY DAY IN THE MORNING AND EVENING
     Route: 045
  5. VITAMIN C [Concomitant]
     Active Substance: ASCORBIC ACID
     Dosage: 1000 MG, 1X/DAY
     Dates: start: 20150310
  6. DULOXETINE. [Concomitant]
     Active Substance: DULOXETINE
     Dosage: 20 MG, DAILY
     Route: 048
     Dates: start: 20150520
  7. GABAPENTIN. [Concomitant]
     Active Substance: GABAPENTIN
     Dosage: 400 MG, 3X/DAY
     Route: 048
     Dates: start: 20150917
  8. TAMSULOSIN [Concomitant]
     Active Substance: TAMSULOSIN
     Dosage: 4.4 MG, DAILY (? HOUR FOLLOWING THE SAME MEAL EACH DAY)
     Route: 048
     Dates: start: 20160111
  9. OXYCODONE-ACETAMINOPHEN [Concomitant]
     Active Substance: ACETAMINOPHEN\OXYCODONE HYDROCHLORIDE
     Dosage: 1DF AS NEEDED(OXYCODONE-ACETAMINOPHEN 7.5 MG-325MG TAB:1 TAB EVERY 4H AS NEEDED)
     Route: 048
  10. VENTOLIN HFA [Concomitant]
     Active Substance: ALBUTEROL SULFATE
     Dosage: 90 MCG/ACTUATION AEROSOL INHALER AT INHALE 2 PUFF BY INHALATION ROUTE EVERY 4-6 HOURS AS NEEDED
     Route: 045

REACTIONS (6)
  - Condition aggravated [Unknown]
  - Chest discomfort [Unknown]
  - Dysphagia [Unknown]
  - Choking sensation [Unknown]
  - Dyspepsia [Unknown]
  - Decreased appetite [Unknown]
